FAERS Safety Report 5306428-X (Version None)
Quarter: 2007Q2

REPORT INFORMATION
  Report Type: 
  Country: None (occurrence: None)
  Receive Date: 20070417
  Receipt Date: 20070417
  Transmission Date: 20071010
  Serious: Yes (Hospitalization, Disabling)
  Sender: FDA-Public Use
  Company Number: B0465997A

PATIENT

DRUGS (3)
  1. LAMOTRIGINE [Suspect]
     Dosage: SEE DOSAGE TEXT
  2. VALPROATE SODIUM [Concomitant]
  3. ADRENALINE [Concomitant]

REACTIONS (15)
  - ACCIDENTAL OVERDOSE [None]
  - ACTIVITIES OF DAILY LIVING IMPAIRED [None]
  - CEREBELLAR SYNDROME [None]
  - CONFUSIONAL STATE [None]
  - COORDINATION ABNORMAL [None]
  - DRUG PRESCRIBING ERROR [None]
  - GENERAL PHYSICAL HEALTH DETERIORATION [None]
  - HAEMATEMESIS [None]
  - HEADACHE [None]
  - MELAENA [None]
  - MOBILITY DECREASED [None]
  - NYSTAGMUS [None]
  - TREMOR [None]
  - ULCER HAEMORRHAGE [None]
  - VISION BLURRED [None]
